FAERS Safety Report 4822219-8 (Version None)
Quarter: 2005Q4

REPORT INFORMATION
  Report Type: 
  Country: None (occurrence: None)
  Receive Date: 20051103
  Receipt Date: 20051019
  Transmission Date: 20060501
  Serious: Yes (Hospitalization)
  Sender: FDA-Public Use
  Company Number: USA0510110803

PATIENT
  Age: 16 Year
  Sex: Male

DRUGS (2)
  1. ZYPREXA [Suspect]
     Dosage: 600 MG
     Dates: start: 20050901
  2. EXTRA STRENGTH TYLENOL [Concomitant]

REACTIONS (4)
  - MULTIPLE DRUG OVERDOSE [None]
  - SEROTONIN SYNDROME [None]
  - SUICIDE ATTEMPT [None]
  - TREATMENT NONCOMPLIANCE [None]
